FAERS Safety Report 4342961-5 (Version None)
Quarter: 2004Q2

REPORT INFORMATION
  Report Type: 
  Country: None (occurrence: None)
  Receive Date: 20040421
  Receipt Date: 20031222
  Transmission Date: 20050107
  Serious: Yes (Hospitalization, Other)
  Sender: FDA-Public Use
  Company Number: JP-MERCK-0312USA02514

PATIENT
  Age: 88 Year
  Sex: Female

DRUGS (11)
  1. [THERAPY UNSPECIFIED] [Concomitant]
     Route: 041
     Dates: start: 20031116, end: 20031226
  2. ARGATROBAN [Concomitant]
     Route: 041
     Dates: start: 20031215, end: 20031225
  3. BROMHEXINE HYDROCHLORIDE [Concomitant]
     Route: 041
     Dates: start: 20031126
  4. BLOPRESS [Suspect]
     Indication: HYPERTENSION
     Route: 048
     Dates: start: 20031130, end: 20031218
  5. CLINDAMYCIN [Concomitant]
     Route: 042
     Dates: start: 20031210, end: 20031216
  6. PEPCID [Suspect]
     Indication: PROPHYLAXIS AGAINST GASTROINTESTINAL ULCER
     Route: 042
     Dates: start: 20031116, end: 20031214
  7. LASIX [Concomitant]
     Route: 042
     Dates: start: 20031118
  8. SEPAMIT [Concomitant]
     Route: 048
     Dates: start: 20031124, end: 20031201
  9. ALEVIATIN [Suspect]
     Indication: CONVULSION
     Route: 042
     Dates: start: 20031117, end: 20031129
  10. ALEVIATIN [Suspect]
     Route: 048
     Dates: start: 20031130, end: 20031216
  11. ALEVIATIN [Suspect]
     Route: 048
     Dates: start: 20031124, end: 20031129

REACTIONS (16)
  - AGRANULOCYTOSIS [None]
  - ALANINE AMINOTRANSFERASE INCREASED [None]
  - ANEURYSM [None]
  - ASPARTATE AMINOTRANSFERASE INCREASED [None]
  - BLOOD ALKALINE PHOSPHATASE INCREASED [None]
  - BLOOD CREATINE PHOSPHOKINASE INCREASED [None]
  - BLOOD LACTATE DEHYDROGENASE INCREASED [None]
  - BLOOD UREA INCREASED [None]
  - CONVULSION [None]
  - GAMMA-GLUTAMYLTRANSFERASE INCREASED [None]
  - HYPERTENSION [None]
  - LIVER DISORDER [None]
  - PLATELET COUNT DECREASED [None]
  - PNEUMONIA ASPIRATION [None]
  - PYREXIA [None]
  - WHITE BLOOD CELL COUNT INCREASED [None]
